FAERS Safety Report 8916900 (Version 2)
Quarter: 2012Q4

REPORT INFORMATION
  Report Type: 
  Country: JP (occurrence: JP)
  Receive Date: 20121120
  Receipt Date: 20121224
  Transmission Date: 20130627
  Serious: Yes (Death, Other)
  Sender: FDA-Public Use
  Company Number: JP-009507513-2011SP031818

PATIENT
  Age: 49 Year
  Sex: Female
  Weight: 48 kg

DRUGS (31)
  1. TEMOZOLOMIDE [Suspect]
     Indication: GLIOBLASTOMA MULTIFORME
     Dosage: 75 mg/m2, qd
     Route: 041
     Dates: start: 20101102, end: 20101213
  2. TEMOZOLOMIDE [Suspect]
     Dosage: 150 mg/m2, qd
     Route: 041
     Dates: start: 20110113, end: 20110117
  3. TEMODAL [Suspect]
     Indication: GLIOBLASTOMA MULTIFORME
     Dosage: UNK
     Route: 048
     Dates: start: 20101026, end: 20101028
  4. GASDOCK [Concomitant]
     Route: 042
     Dates: start: 20101029, end: 20101107
  5. GASDOCK [Concomitant]
     Dosage: UNK
     Route: 042
     Dates: start: 20101129, end: 20101217
  6. GLYCEOL (GLYCERIN) [Concomitant]
     Route: 041
     Dates: start: 20101024, end: 20101108
  7. FULCALIQ [Concomitant]
     Route: 041
     Dates: start: 20101030, end: 20101107
  8. FULCALIQ [Concomitant]
     Dosage: UNK
     Route: 041
     Dates: start: 20101102, end: 20101213
  9. FULCALIQ [Concomitant]
     Dosage: UNK
     Route: 041
     Dates: start: 20101214, end: 20101222
  10. GRANISETRON [Concomitant]
     Indication: PROPHYLAXIS
     Route: 041
     Dates: start: 20101102, end: 20101213
  11. GRANISETRON [Concomitant]
     Dosage: UNK
     Route: 041
     Dates: start: 20110113, end: 20110117
  12. DECADRON PHOSPHATE INJECTION [Concomitant]
     Route: 030
     Dates: start: 20101024, end: 20110117
  13. DECADRON [Concomitant]
     Route: 048
     Dates: start: 20110118, end: 20110503
  14. PENTAZOCINE HYDROCHLORIDE [Concomitant]
     Dates: start: 20101113, end: 20101114
  15. AFRIN [Concomitant]
     Route: 041
     Dates: start: 20101106, end: 20110111
  16. CEFTRIAXONE SODIUM [Concomitant]
     Route: 041
     Dates: start: 20101119, end: 20101121
  17. STRONGER NEO-MINOPHAGEN C [Concomitant]
     Route: 042
     Dates: start: 20101217, end: 20110102
  18. BFLUID [Concomitant]
     Route: 041
     Dates: start: 20101223, end: 20110111
  19. SOLITAX H [Concomitant]
     Route: 041
     Dates: start: 20101223, end: 20101227
  20. SOLITAX H [Concomitant]
     Dosage: UNK
     Route: 041
     Dates: start: 20101231, end: 20110114
  21. MAC AMIN [Concomitant]
     Dosage: UNK
     Route: 041
     Dates: start: 20110102, end: 20110124
  22. CEFAZOLIN SODIUM [Concomitant]
     Route: 041
     Dates: start: 20110106, end: 20110107
  23. CYANOCOBALAMIN (+) PYRIDOXINE HYDROCHLORIDE (+) RIBOFLAVIN (+) THIAMIN [Concomitant]
     Route: 041
     Dates: start: 20110108, end: 20110117
  24. LEXIN (CARBAMAZEPINE) [Concomitant]
     Route: 048
     Dates: start: 20101013, end: 20101221
  25. CELECOXIB [Concomitant]
     Route: 048
     Dates: start: 20101105, end: 20101109
  26. ATELEC [Concomitant]
     Route: 048
     Dates: start: 20101114, end: 20110201
  27. VOLTAREN [Concomitant]
     Route: 054
     Dates: start: 20101117, end: 20101130
  28. GASMOTIN [Concomitant]
     Route: 048
     Dates: start: 20101213, end: 20101217
  29. URSO [Concomitant]
     Route: 048
     Dates: start: 20101217, end: 20110111
  30. GRANISETRON [Concomitant]
     Indication: PROPHYLAXIS
     Dosage: UNK
     Route: 041
     Dates: start: 20110113, end: 20110117
  31. NEOLAMIN 3B INTRAVENOUS [Concomitant]
     Dosage: UNK
     Route: 041
     Dates: start: 20110108, end: 20110117

REACTIONS (21)
  - Haemorrhagic erosive gastritis [Recovered/Resolved]
  - Lymphocyte count decreased [Not Recovered/Not Resolved]
  - Blood pressure increased [Recovered/Resolved]
  - Tracheostomy [Recovered/Resolved]
  - Disease progression [Fatal]
  - Pneumonia [Recovered/Resolved]
  - Gastric disorder [Recovered/Resolved]
  - Hyponatraemia [Recovered/Resolved]
  - Hepatic function abnormal [Recovered/Resolved]
  - Hepatic function abnormal [Recovered/Resolved]
  - Hepatic function abnormal [Recovered/Resolved]
  - Blood urea increased [Recovered/Resolved]
  - Hyponatraemia [Recovered/Resolved]
  - Dehydration [Recovered/Resolved]
  - Hypoalbuminaemia [Not Recovered/Not Resolved]
  - Cystitis [Recovered/Resolved]
  - Hypertension [Recovered/Resolved]
  - Hepatic function abnormal [Recovered/Resolved]
  - Headache [Recovered/Resolved]
  - Headache [Recovered/Resolved]
  - Headache [Recovered/Resolved]
